FAERS Safety Report 4299418-X (Version None)
Quarter: 2004Q1

REPORT INFORMATION
  Report Type: 
  Country: None (occurrence: None)
  Receive Date: 20040217
  Receipt Date: 20040123
  Transmission Date: 20041129
  Serious: Yes (Other)
  Sender: FDA-Public Use
  Company Number: US-JNJFOC-20040200247

PATIENT
  Age: 76 Year
  Sex: Female
  Weight: 82.1011 kg

DRUGS (21)
  1. REMICADE [Suspect]
     Indication: UVEITIS
     Dosage: 10 MG/KG, INTRAVENOUS
     Route: 042
     Dates: start: 20020322
  2. REMICADE [Suspect]
     Indication: UVEITIS
     Dosage: 10 MG/KG, INTRAVENOUS
     Route: 042
     Dates: start: 20020404
  3. REMICADE [Suspect]
     Indication: UVEITIS
     Dosage: 10 MG/KG, INTRAVENOUS
     Route: 042
     Dates: start: 20020502
  4. REMICADE [Suspect]
     Indication: UVEITIS
     Dosage: 10 MG/KG, INTRAVENOUS
     Route: 042
     Dates: start: 20020627
  5. REMICADE [Suspect]
     Indication: UVEITIS
     Dosage: 10 MG/KG, INTRAVENOUS
     Route: 042
     Dates: start: 20020822
  6. REMICADE [Suspect]
     Indication: UVEITIS
     Dosage: 10 MG/KG, INTRAVENOUS
     Route: 042
     Dates: start: 20021017
  7. REMICADE [Suspect]
     Indication: UVEITIS
     Dosage: 10 MG/KG, INTRAVENOUS
     Route: 042
     Dates: start: 20021212
  8. REMICADE [Suspect]
     Indication: UVEITIS
     Dosage: 10 MG/KG, INTRAVENOUS
     Route: 042
     Dates: start: 20030206
  9. REMICADE [Suspect]
     Indication: UVEITIS
     Dosage: 10 MG/KG, INTRAVENOUS
     Route: 042
     Dates: start: 20030417
  10. REMICADE [Suspect]
     Indication: UVEITIS
     Dosage: 10 MG/KG, INTRAVENOUS
     Route: 042
     Dates: start: 20030819
  11. REMICADE [Suspect]
     Indication: UVEITIS
     Dosage: 10 MG/KG, INTRAVENOUS
     Route: 042
     Dates: start: 20031009
  12. REMICADE [Suspect]
     Indication: UVEITIS
     Dosage: 10 MG/KG, INTRAVENOUS
     Route: 042
     Dates: start: 20031216
  13. REMICADE [Suspect]
  14. ALPHAGAN [Concomitant]
  15. TIMOPTIC [Concomitant]
  16. FOSOMAX (ALENDRONATE SODIUM) [Concomitant]
  17. ACETYLSALICYLIC ACID SRT [Concomitant]
  18. WARFARIN SODIUM [Concomitant]
  19. SYNTHROID [Concomitant]
  20. FOLIC ACID [Concomitant]
  21. ATENOLOL [Concomitant]

REACTIONS (8)
  - BLOOD CHLORIDE INCREASED [None]
  - BLOOD GLUCOSE INCREASED [None]
  - BRAIN NATRIURETIC PEPTIDE INCREASED [None]
  - CARDIAC FAILURE CONGESTIVE [None]
  - CARDIOMEGALY [None]
  - DYSPNOEA [None]
  - INTERNATIONAL NORMALISED RATIO INCREASED [None]
  - MYOGLOBIN BLOOD INCREASED [None]
